FAERS Safety Report 23610438 (Version 2)
Quarter: 2024Q1

REPORT INFORMATION
  Report Type: Spontaneous
  Country: CH (occurrence: CH)
  Receive Date: 20240308
  Receipt Date: 20240314
  Transmission Date: 20240410
  Serious: Yes (Other)
  Sender: FDA-Public Use
  Company Number: CH-BAYER-2024A022629

PATIENT
  Sex: Male

DRUGS (1)
  1. EYLEA HD [Suspect]
     Active Substance: AFLIBERCEPT
     Indication: Product used for unknown indication
     Dosage: 8 MG, SOLUTION FOR INJECTION, STRENGTH: 114.3 MG/ML
     Route: 031
     Dates: start: 20240129

REACTIONS (5)
  - Retinal haemorrhage [Recovered/Resolved]
  - Eye inflammation [Recovered/Resolved]
  - Uveitis [Recovered/Resolved]
  - Visual impairment [Unknown]
  - Vitreous floaters [Unknown]

NARRATIVE: CASE EVENT DATE: 20240202
